FAERS Safety Report 5212203-7 (Version None)
Quarter: 2007Q1

REPORT INFORMATION
  Report Type: 
  Country: None (occurrence: None)
  Receive Date: 20061120
  Receipt Date: 20060913
  Transmission Date: 20070707
  Serious: Yes (Other)
  Sender: FDA-Public Use
  Company Number: US-2006-026866

PATIENT
  Age: 29 Year
  Weight: 90 kg

DRUGS (3)
  1. ULTRAVIST (PHARMACY BULK) [Suspect]
     Indication: COMPUTERISED TOMOGRAM ABDOMEN
     Dosage: 120 MG, 1 DOSE, INTRAVENOUS
     Route: 042
     Dates: start: 20060913, end: 20060913
  2. READI-CAT [Concomitant]
  3. OMEPRAZOLE [Concomitant]

REACTIONS (4)
  - PHARYNGOLARYNGEAL DISCOMFORT [None]
  - PRURITUS [None]
  - THROAT TIGHTNESS [None]
  - URTICARIA [None]
